FAERS Safety Report 7460163-0 (Version None)
Quarter: 2011Q2

REPORT INFORMATION
  Report Type: 
  Country: None (occurrence: None)
  Receive Date: 20110505
  Receipt Date: 20110421
  Transmission Date: 20111010
  Serious: Yes (Hospitalization)
  Sender: FDA-Public Use
  Company Number: NL-JNJFOC-20080504221

PATIENT
  Sex: Female
  Weight: 119 kg

DRUGS (8)
  1. REMICADE [Suspect]
     Route: 042
  2. INSULATARD [Concomitant]
     Indication: DIABETES MELLITUS
  3. IBUPROFEN [Concomitant]
     Indication: CROHN'S DISEASE
  4. REMICADE [Suspect]
     Route: 042
  5. IMURAN [Concomitant]
     Indication: CROHN'S DISEASE
  6. MORPHINE [Concomitant]
     Indication: CROHN'S DISEASE
  7. NOVORAPID [Concomitant]
     Indication: DIABETES MELLITUS
  8. REMICADE [Suspect]
     Indication: CROHN'S DISEASE
     Route: 042

REACTIONS (1)
  - COLECTOMY [None]
